FAERS Safety Report 25905268 (Version 2)
Quarter: 2025Q4

REPORT INFORMATION
  Report Type: Report from Study
  Country: US (occurrence: None)
  Receive Date: 20251010
  Receipt Date: 20251111
  Transmission Date: 20260118
  Serious: Yes (Hospitalization, Other)
  Sender: UCB
  Company Number: US-UCBSA-2025055189

PATIENT
  Age: 66 Year

DRUGS (2)
  1. BIMZELX [Suspect]
     Active Substance: BIMEKIZUMAB-BKZX
     Indication: Psoriasis
     Dosage: 320 MILLIGRAM, EV 4 WEEKS
  2. BIMZELX [Suspect]
     Active Substance: BIMEKIZUMAB-BKZX
     Dosage: 320 MILLIGRAM, EV 8 WEEKS

REACTIONS (6)
  - Coronary artery occlusion [Unknown]
  - Cardiac operation [Not Recovered/Not Resolved]
  - Psoriasis [Unknown]
  - Eczema [Unknown]
  - Wrong technique in product usage process [Unknown]
  - Product dose omission issue [Unknown]
